FAERS Safety Report 24657537 (Version 2)
Quarter: 2024Q4

REPORT INFORMATION
  Report Type: Spontaneous
  Country: US (occurrence: US)
  Receive Date: 20241125
  Receipt Date: 20241225
  Transmission Date: 20250114
  Serious: Yes (Life-Threatening, Hospitalization, Other)
  Sender: AUROBINDO
  Company Number: US-MLMSERVICE-20241105-PI246898-00271-1

PATIENT
  Age: 42 Year
  Sex: Male

DRUGS (6)
  1. PREDNISONE [Suspect]
     Active Substance: PREDNISONE
     Indication: Sarcoidosis
     Dosage: 80 MILLIGRAM, ONCE A DAY (DAILY ORAL 80-MG PREDNISONE THERAPY)
     Route: 048
  2. PREDNISONE [Suspect]
     Active Substance: PREDNISONE
     Dosage: SLOWLY TAPERED TO 40MG
     Route: 048
  3. MEROPENEM [Concomitant]
     Active Substance: MEROPENEM
     Indication: Sarcoidosis
     Dosage: UNK
     Route: 065
  4. VANCOMYCIN [Concomitant]
     Active Substance: VANCOMYCIN
     Indication: Sarcoidosis
     Dosage: UNK
     Route: 065
  5. FLUCONAZOLE [Concomitant]
     Active Substance: FLUCONAZOLE
     Indication: Sarcoidosis
     Dosage: UNK
     Route: 065
  6. COTRIMOXAZOLE [Concomitant]
     Active Substance: SULFAMETHOXAZOLE\TRIMETHOPRIM
     Indication: Sarcoidosis
     Dosage: UNK
     Route: 065

REACTIONS (5)
  - Necrotising fasciitis fungal [Unknown]
  - Disseminated cryptococcosis [Unknown]
  - Fungal myositis [Unknown]
  - Sepsis [Unknown]
  - Enterobacter infection [Unknown]
